FAERS Safety Report 24466290 (Version 1)
Quarter: 2024Q4

REPORT INFORMATION
  Report Type: Report from Study
  Country: US (occurrence: US)
  Receive Date: 20241018
  Receipt Date: 20241018
  Transmission Date: 20250115
  Serious: No
  Sender: ROCHE
  Company Number: US-ROCHE-3538566

PATIENT
  Age: 70 Year
  Sex: Female
  Weight: 120.0 kg

DRUGS (1)
  1. XOLAIR [Interacting]
     Active Substance: OMALIZUMAB
     Indication: Asthma
     Dosage: ANTICIPATED DATE OF TREATMENT: 04/03/2024, LAST INJECTION DATE: 04/02/2024
     Route: 058

REACTIONS (2)
  - Off label use [Unknown]
  - No adverse event [Unknown]
